FAERS Safety Report 8077390-4 (Version None)
Quarter: 2012Q1

REPORT INFORMATION
  Report Type: 
  Country: None (occurrence: None)
  Receive Date: 20120127
  Receipt Date: 20120124
  Transmission Date: 20120608
  Serious: Yes (Death)
  Sender: FDA-Public Use
  Company Number: PHHY2012NL006447

PATIENT
  Sex: Female

DRUGS (4)
  1. ZOMETA [Suspect]
     Dosage: 4 MG/100 ML SOLUTION FOR INFUSION
     Dates: start: 20091211
  2. ZOMETA [Suspect]
     Dosage: 4 MG/100 ML SOLUTION FOR INFUSION
     Dates: start: 20111122
  3. ZOMETA [Suspect]
     Dosage: 4 MG/100 ML SOLUTION FOR INFUSION
     Dates: start: 20111220
  4. ZOMETA [Suspect]
     Indication: BREAST CANCER METASTATIC
     Dosage: 4 MG/100 ML SOLUTION FOR INFUSION

REACTIONS (1)
  - DEATH [None]
